FAERS Safety Report 7400652-8 (Version None)
Quarter: 2011Q2

REPORT INFORMATION
  Report Type: 
  Country: None (occurrence: None)
  Receive Date: 20110407
  Receipt Date: 20110328
  Transmission Date: 20111010
  Serious: Yes (Other)
  Sender: FDA-Public Use
  Company Number: PHHY2011DE25451

PATIENT
  Age: 68 Year
  Sex: Male

DRUGS (3)
  1. FLUOROURACIL [Suspect]
     Indication: CONJUNCTIVAL SCAR
     Dosage: 5 MG, UNK
     Route: 057
  2. TETRACAINE POLYGYL STERILE OPHTHALMIC SOLUTION [Concomitant]
     Indication: ANAESTHESIA
     Route: 061
  3. MITOMYCIN [Concomitant]

REACTIONS (3)
  - INCORRECT ROUTE OF DRUG ADMINISTRATION [None]
  - GRAND MAL CONVULSION [None]
  - AMNESIA [None]
